FAERS Safety Report 8604928-8 (Version None)
Quarter: 2012Q3

REPORT INFORMATION
  Report Type: 
  Country: None (occurrence: None)
  Receive Date: 20120820
  Receipt Date: 20120809
  Transmission Date: 20120928
  Serious: Yes (Hospitalization, Other)
  Sender: FDA-Public Use
  Company Number: US-NOVOPROD-358019

PATIENT
  Age: 76 Year
  Sex: Female

DRUGS (2)
  1. HUMALOG [Concomitant]
     Indication: DIABETES MELLITUS
     Dosage: 6 IU, TID, WITH MEALS
     Dates: start: 20091229
  2. LEVEMIR [Suspect]
     Indication: DIABETES MELLITUS
     Dosage: 10 IU, QD

REACTIONS (1)
  - PANCREATIC CARCINOMA NON-RESECTABLE [None]
